FAERS Safety Report 15001466 (Version 1)
Quarter: 2018Q2

REPORT INFORMATION
  Report Type: Spontaneous
  Country: US (occurrence: US)
  Receive Date: 20180612
  Receipt Date: 20180612
  Transmission Date: 20180711
  Serious: Yes (Hospitalization)
  Sender: FDA-Public Use
  Company Number: US-OTSUKA-2018_015034

PATIENT
  Sex: Male

DRUGS (2)
  1. SAMSCA [Suspect]
     Active Substance: TOLVAPTAN
     Indication: INAPPROPRIATE ANTIDIURETIC HORMONE SECRETION
     Dosage: UNK (30 DAY SUPPLY)
     Route: 065
  2. SAMSCA [Suspect]
     Active Substance: TOLVAPTAN
     Indication: BLOOD SODIUM DECREASED
     Dosage: 30 MG, QD (DAILY)
     Route: 048

REACTIONS (5)
  - Hospitalisation [Unknown]
  - Therapeutic response shortened [Unknown]
  - Incorrect dose administered [Unknown]
  - Fall [Unknown]
  - Upper limb fracture [Unknown]
